FAERS Safety Report 8152525-3 (Version None)
Quarter: 2012Q1

REPORT INFORMATION
  Report Type: 
  Country: None (occurrence: None)
  Receive Date: 20120221
  Receipt Date: 20120216
  Transmission Date: 20120608
  Serious: Yes (Other)
  Sender: FDA-Public Use
  Company Number: US-PFIZER INC-2012032113

PATIENT
  Sex: Male
  Weight: 53.968 kg

DRUGS (6)
  1. LIPITOR [Suspect]
     Indication: BLOOD CHOLESTEROL ABNORMAL
     Dosage: 20 MG, DAILY
     Route: 048
     Dates: start: 19920101
  2. BENAZEPRIL [Concomitant]
     Indication: HYPERTENSION
  3. BENAZEPRIL [Concomitant]
     Indication: BLOOD PRESSURE ABNORMAL
     Dosage: 20 MG, DAILY
  4. LIPITOR [Suspect]
     Indication: BLOOD TRIGLYCERIDES ABNORMAL
     Dosage: 40 MG, DAILY
     Dates: start: 19980101
  5. LIPITOR [Suspect]
     Indication: BLOOD CHOLESTEROL INCREASED
  6. ASPIRIN [Concomitant]
     Dosage: 81 MG, 2X/DAY

REACTIONS (9)
  - HYPOTONIA [None]
  - OEDEMA PERIPHERAL [None]
  - BONE LOSS [None]
  - WEIGHT DECREASED [None]
  - ASTHENIA [None]
  - MUSCULAR WEAKNESS [None]
  - BONE DISORDER [None]
  - MUSCLE SPASMS [None]
  - MYALGIA [None]
